FAERS Safety Report 15310260 (Version 1)
Quarter: 2018Q4

REPORT INFORMATION
  Report Type: Report from Study
  Country: ES (occurrence: ES)
  Receive Date: 20180823
  Receipt Date: 20180823
  Transmission Date: 20190204
  Serious: Yes (Hospitalization)
  Sender: FDA-Public Use
  Company Number: ES-TEVA-2018-ES-946034

PATIENT
  Age: 39 Year
  Sex: Female

DRUGS (3)
  1. MEROPENEM (7155A) [Suspect]
     Active Substance: MEROPENEM
     Indication: PNEUMONIA
     Dosage: 3 GRAM DAILY;
     Route: 042
     Dates: start: 20151023, end: 20151103
  2. VANCOMICINA (3197A) [Suspect]
     Active Substance: VANCOMYCIN
     Indication: PNEUMONIA
     Dosage: 3 GRAM DAILY;
     Route: 042
     Dates: start: 20151013, end: 20151023
  3. TRIMETOPRIM/SULFAMETOXAZOL [Suspect]
     Active Substance: SULFAMETHOXAZOLE\TRIMETHOPRIM
     Indication: PNEUMONIA
     Dosage: 3 DOSAGE FORMS DAILY; 800/160 MG, 3 TIMES A DAY
     Route: 042
     Dates: start: 20151023, end: 20151102

REACTIONS (1)
  - Drug reaction with eosinophilia and systemic symptoms [Recovered/Resolved]

NARRATIVE: CASE EVENT DATE: 20151101
